FAERS Safety Report 17661539 (Version 1)
Quarter: 2020Q2

REPORT INFORMATION
  Report Type: Spontaneous
  Country: US (occurrence: US)
  Receive Date: 20200413
  Receipt Date: 20200413
  Transmission Date: 20200713
  Serious: No
  Sender: FDA-Public Use
  Company Number: US-VERTEX PHARMACEUTICALS-2020-007925

PATIENT
  Age: 41 Year
  Sex: Female

DRUGS (1)
  1. TRIKAFTA [Suspect]
     Active Substance: ELEXACAFTOR\IVACAFTOR\TEZACAFTOR
     Indication: CYSTIC FIBROSIS
     Dosage: 100-150-75/50MG, BID
     Route: 048
     Dates: start: 201812

REACTIONS (1)
  - Balance disorder [Unknown]

NARRATIVE: CASE EVENT DATE: 20200115
